FAERS Safety Report 8913119 (Version 1)
Quarter: 2012Q4

REPORT INFORMATION
  Report Type: 
  Country: CA (occurrence: CA)
  Receive Date: 20121116
  Receipt Date: 20121116
  Transmission Date: 20130627
  Serious: Yes (Hospitalization)
  Sender: FDA-Public Use
  Company Number: CA-ASTRAZENECA-2012SE85197

PATIENT
  Age: 81 Year
  Sex: Female

DRUGS (10)
  1. ATACAND PLUS [Suspect]
     Route: 048
  2. ATACAND PLUS [Suspect]
     Route: 048
  3. PANTOPRAZOLE [Suspect]
     Route: 048
  4. ANUSOL HC [Concomitant]
  5. BISOPROLOL [Concomitant]
  6. ELTROXIN [Concomitant]
  7. NITRO-DUR [Concomitant]
  8. NITROLINGUAL PUMPSPRAY [Concomitant]
  9. PANTOLOC [Concomitant]
  10. ZANTAC [Concomitant]

REACTIONS (2)
  - Product substitution issue [Unknown]
  - Angioedema [Unknown]
